FAERS Safety Report 4872561-X (Version None)
Quarter: 2006Q1

REPORT INFORMATION
  Report Type: 
  Country: None (occurrence: None)
  Receive Date: 20060105
  Receipt Date: 20030828
  Transmission Date: 20060701
  Serious: Yes (Disabling)
  Sender: FDA-Public Use
  Company Number: CH-BOEHRINGER INGELHEIM PHARMACEUTICALS, INC.-2003-DE-03828SI

PATIENT
  Age: 66 Year
  Sex: Male

DRUGS (2)
  1. SIFROL [Suspect]
     Indication: PARKINSON'S DISEASE
     Route: 048
     Dates: start: 20021022, end: 20030718
  2. SINEMET CR [Concomitant]
     Indication: PARKINSON'S DISEASE
     Dosage: CARBIDOPA 25 MG / LEVODOPA 100 MG
     Route: 048

REACTIONS (1)
  - ATRIAL FLUTTER [None]
